FAERS Safety Report 20002233 (Version 1)
Quarter: 2021Q4

REPORT INFORMATION
  Report Type: Spontaneous
  Country: FR (occurrence: FR)
  Receive Date: 20211027
  Receipt Date: 20211027
  Transmission Date: 20220303
  Serious: Yes (Other)
  Sender: FDA-Public Use
  Company Number: None

PATIENT
  Age: 46 Year
  Sex: Male
  Weight: 96 kg

DRUGS (5)
  1. TACROLIMUS [Suspect]
     Active Substance: TACROLIMUS
     Indication: Product used for unknown indication
     Dosage: 2 MG, QD
     Route: 048
     Dates: start: 20210812, end: 20210916
  2. VALGANCICLOVIR [Suspect]
     Active Substance: VALGANCICLOVIR
     Indication: Antiviral prophylaxis
     Dosage: 225 MG, QD (450 MG*1X/2JR)
     Route: 048
     Dates: start: 20210817, end: 20210917
  3. CELLCEPT [Suspect]
     Active Substance: MYCOPHENOLATE MOFETIL\MYCOPHENOLATE MOFETIL HYDROCHLORIDE
     Indication: Liver transplant
     Dosage: 500 MG, QD
     Route: 042
     Dates: start: 20210814, end: 20210913
  4. BACTRIM [Suspect]
     Active Substance: SULFAMETHOXAZOLE\TRIMETHOPRIM
     Indication: Bacterial infection
     Dosage: 400 MG, QD
     Route: 042
     Dates: start: 20210909, end: 20210919
  5. NOXAFIL [Suspect]
     Active Substance: POSACONAZOLE
     Indication: Immunosuppression
     Dosage: 300 MG, QD
     Route: 048
     Dates: start: 20210812, end: 20210915

REACTIONS (1)
  - Pancytopenia [Recovering/Resolving]

NARRATIVE: CASE EVENT DATE: 20210913
